FAERS Safety Report 9237872 (Version 2)
Quarter: 2013Q2

REPORT INFORMATION
  Report Type: Spontaneous
  Country: GR (occurrence: None)
  Receive Date: 20130415
  Receipt Date: 20130502
  Transmission Date: 20140414
  Serious: Yes (Hospitalization)
  Sender: FDA-Public Use
  Company Number: ACO_35452_2013

PATIENT
  Sex: Male

DRUGS (2)
  1. FAMPYRA (DALFAMPRIDINE) TABLET, 10MG [Suspect]
     Indication: PRODUCT USED FOR UNKNOWN INDICATION
  2. TYSABRI (NATALIZUMAB) [Concomitant]

REACTIONS (1)
  - Convulsion [None]
